FAERS Safety Report 7041954-7 (Version None)
Quarter: 2010Q4

REPORT INFORMATION
  Report Type: 
  Country: None (occurrence: None)
  Receive Date: 20101013
  Receipt Date: 20091125
  Transmission Date: 20110411
  Serious: No
  Sender: FDA-Public Use
  Company Number: US-ASTRAZENECA-2009SE20734

PATIENT
  Age: 54 Year
  Sex: Male

DRUGS (1)
  1. SYMBICORT [Suspect]
     Indication: LUNG LOBECTOMY
     Dosage: 80/4.5 TWO PUFFS BID
     Route: 055
     Dates: start: 20090101

REACTIONS (1)
  - UPPER LIMB FRACTURE [None]
